FAERS Safety Report 6720066-3 (Version None)
Quarter: 2010Q2

REPORT INFORMATION
  Report Type: 
  Country: None (occurrence: None)
  Receive Date: 20100511
  Receipt Date: 20100429
  Transmission Date: 20101027
  Serious: Yes (Death, Other)
  Sender: FDA-Public Use
  Company Number: US-BAYER-200936533NA

PATIENT
  Age: 72 Year
  Sex: Female
  Weight: 53 kg

DRUGS (26)
  1. MAGNEVIST [Suspect]
     Indication: NUCLEAR MAGNETIC RESONANCE IMAGING
     Dosage: TOTAL DAILY DOSE: 15 ML
     Dates: start: 20030513, end: 20030513
  2. MAGNEVIST [Suspect]
     Dosage: TOTAL DAILY DOSE: 15 ML
     Dates: start: 20040427, end: 20040427
  3. MAGNEVIST [Suspect]
     Dosage: TOTAL DAILY DOSE: 15 ML
     Dates: start: 20041019, end: 20041019
  4. MAGNEVIST [Suspect]
     Dosage: TOTAL DAILY DOSE: 15 ML
     Dates: start: 20060418, end: 20060418
  5. OMNISCAN [Suspect]
     Indication: NUCLEAR MAGNETIC RESONANCE IMAGING
  6. OPTIMARK [Suspect]
     Indication: NUCLEAR MAGNETIC RESONANCE IMAGING
  7. MULTIHANCE [Suspect]
     Indication: NUCLEAR MAGNETIC RESONANCE IMAGING
  8. PROHANCE [Suspect]
     Indication: NUCLEAR MAGNETIC RESONANCE IMAGING
  9. UNSPECIFIED GADOLINIUM CONTRAST BASED AGENT [Suspect]
     Indication: NUCLEAR MAGNETIC RESONANCE IMAGING ABDOMINAL
     Dates: start: 20021009, end: 20021009
  10. UNSPECIFIED GADOLINIUM CONTRAST BASED AGENT [Suspect]
     Dates: start: 20031125, end: 20031125
  11. UNSPECIFIED GADOLINIUM CONTRAST BASED AGENT [Suspect]
     Dates: start: 20021220, end: 20021220
  12. UNSPECIFIED GADOLINIUM CONTRAST BASED AGENT [Suspect]
     Dates: start: 20021102, end: 20021102
  13. SENSIPAR [Concomitant]
  14. CRESTOR [Concomitant]
  15. ZETIA [Concomitant]
  16. RENAL CAPS [Concomitant]
  17. PLAVIX [Concomitant]
  18. NORVASC [Concomitant]
     Indication: HYPERTENSION
  19. METOPROLOL TARTRATE [Concomitant]
  20. LISINOPRIL [Concomitant]
  21. LEVOXYL [Concomitant]
  22. FOSRENOL [Concomitant]
  23. ASPIRIN [Concomitant]
     Indication: ISCHAEMIC HEART DISEASE PROPHYLAXIS
  24. ACTOS [Concomitant]
     Indication: DIABETES MELLITUS MANAGEMENT
  25. VYTORIN [Concomitant]
     Indication: HYPERTENSION
  26. LABETALOL HCL [Concomitant]
     Indication: HYPERTENSION

REACTIONS (15)
  - ASTHENIA [None]
  - ERYTHEMA [None]
  - LIVEDO RETICULARIS [None]
  - MOBILITY DECREASED [None]
  - NEPHROGENIC SYSTEMIC FIBROSIS [None]
  - PAIN [None]
  - PRURITUS [None]
  - RASH PAPULAR [None]
  - SKIN DISCOLOURATION [None]
  - SKIN DISORDER [None]
  - SKIN EXFOLIATION [None]
  - SKIN HYPERPIGMENTATION [None]
  - SKIN HYPERTROPHY [None]
  - SKIN INDURATION [None]
  - XEROSIS [None]
